FAERS Safety Report 9261232 (Version 1)
Quarter: 2013Q2

REPORT INFORMATION
  Report Type: Spontaneous
  Country: US (occurrence: US)
  Receive Date: 20130429
  Receipt Date: 20130429
  Transmission Date: 20140414
  Serious: Yes (Other)
  Sender: FDA-Public Use
  Company Number: US-TEVA-400536USA

PATIENT
  Age: 9 Year
  Sex: Female

DRUGS (5)
  1. DOXORUBICIN [Suspect]
     Indication: UNDIFFERENTIATED SARCOMA
     Route: 065
  2. IFOSFAMIDE [Suspect]
     Indication: UNDIFFERENTIATED SARCOMA
     Route: 065
  3. ONDANSETRON [Concomitant]
     Indication: NAUSEA
     Route: 065
  4. DEXAMETHASONE [Concomitant]
     Indication: NAUSEA
     Route: 065
  5. FLUCONAZOLE [Concomitant]
     Indication: OESOPHAGEAL CANDIDIASIS
     Route: 065

REACTIONS (1)
  - Pancytopenia [Unknown]
